FAERS Safety Report 24685302 (Version 2)
Quarter: 2024Q4

REPORT INFORMATION
  Report Type: Spontaneous
  Country: US (occurrence: US)
  Receive Date: 20241202
  Receipt Date: 20241205
  Transmission Date: 20250114
  Serious: No
  Sender: MYLAN
  Company Number: US-MYLANLABS-2024M1106942

PATIENT
  Sex: Male

DRUGS (3)
  1. REVATIO [Suspect]
     Active Substance: SILDENAFIL CITRATE
     Indication: Product used for unknown indication
     Dosage: TAKE 2 TO 5 TABLETS BY MOUTH 1 HOUR PRIOR TO ACTIVITY
     Route: 048
     Dates: start: 20240916
  2. ZITHROMAX [Concomitant]
     Active Substance: AZITHROMYCIN DIHYDRATE
     Dosage: 2 TABLETS ON DAY 1, AND 1 TABLET EVERY DAY
     Route: 048
     Dates: start: 20241111, end: 20241116
  3. ALDACTONE [Concomitant]
     Active Substance: SPIRONOLACTONE
     Dosage: UNK, AM (TAKE 1/2 TABLET BY MOUTH EVERY MORNING)
     Route: 048
     Dates: start: 20240315

REACTIONS (1)
  - Off label use [Unknown]
